FAERS Safety Report 8847162 (Version 2)
Quarter: 2012Q4

REPORT INFORMATION
  Report Type: 
  Country: FR (occurrence: FR)
  Receive Date: 20121018
  Receipt Date: 20121113
  Transmission Date: 20130627
  Serious: Yes (Hospitalization)
  Sender: FDA-Public Use
  Company Number: FR-009507513-1210FRA005214

PATIENT
  Age: 80 Year
  Sex: Female

DRUGS (7)
  1. ZOCOR [Suspect]
     Dosage: 40 mg, qd
     Route: 048
  2. PREVISCAN [Suspect]
     Indication: ATRIAL FIBRILLATION
     Dosage: UNK
     Route: 048
     Dates: end: 20120217
  3. PREVISCAN [Suspect]
     Dosage: UNK
     Dates: start: 20120305
  4. ALLOPURINOL [Suspect]
     Dosage: 200 mg, UNK
     Route: 048
  5. DETENSIEL [Concomitant]
  6. ATACAND [Concomitant]
  7. LASILIX [Concomitant]

REACTIONS (5)
  - Melaena [Recovered/Resolved]
  - Anaemia [Recovered/Resolved]
  - Oesophagitis [None]
  - Duodenal ulcer [None]
  - International normalised ratio increased [None]
